FAERS Safety Report 9159535 (Version 5)
Quarter: 2013Q4

REPORT INFORMATION
  Report Type: Report from Study
  Country: US (occurrence: US)
  Receive Date: 20130313
  Receipt Date: 20131227
  Transmission Date: 20140711
  Serious: Yes (Hospitalization)
  Sender: FDA-Public Use
  Company Number: US-SANOFI-AVENTIS-2013SA023726

PATIENT
  Age: 5 Year
  Sex: Male
  Weight: 19.2 kg

DRUGS (22)
  1. CABAZITAXEL [Suspect]
     Indication: NEOPLASM
     Route: 042
     Dates: start: 20130305, end: 20130305
  2. GRANULOCYTE COLONY-STIMULATING FACTOR NOS [Suspect]
     Indication: PROPHYLAXIS
  3. ACETAMINOPHEN [Concomitant]
     Route: 048
     Dates: start: 20130305
  4. CEFTRIAXONE [Concomitant]
     Route: 042
     Dates: start: 20130305
  5. SODIUM CHLORIDE [Concomitant]
     Route: 042
     Dates: start: 20130305
  6. EMLA [Concomitant]
     Route: 061
     Dates: start: 20130305
  7. MANNITOL [Concomitant]
     Dates: start: 20130305
  8. NORMAL SALINE [Concomitant]
     Route: 042
     Dates: start: 20130305
  9. ALBUTEROL [Concomitant]
     Route: 055
     Dates: start: 20101209
  10. FLOVENT [Concomitant]
     Route: 055
     Dates: start: 20110609
  11. TYLENOL [Concomitant]
     Route: 048
     Dates: start: 20130124
  12. DEXAMETHASONE [Concomitant]
     Route: 048
     Dates: start: 20130124
  13. DIPHENHYDRAMINE HYDROCHLORIDE [Concomitant]
     Indication: PROPHYLAXIS
     Route: 048
     Dates: start: 20130111
  14. LACTULOSE [Concomitant]
     Route: 048
     Dates: start: 20130110
  15. KEPPRA [Concomitant]
     Indication: PROPHYLAXIS
     Route: 048
     Dates: start: 20101030
  16. MORPHINE [Concomitant]
     Route: 048
     Dates: start: 20130110
  17. MULTIVITAMINS [Concomitant]
     Route: 048
     Dates: start: 20120424
  18. ZOFRAN [Concomitant]
     Route: 048
     Dates: start: 20110105
  19. MIRALAX [Concomitant]
     Route: 048
  20. SENNA [Concomitant]
     Route: 048
  21. BACTRIM [Concomitant]
     Route: 048
  22. METHADONE [Concomitant]
     Route: 048

REACTIONS (1)
  - Intracranial tumour haemorrhage [Recovered/Resolved]
